FAERS Safety Report 7037190-0 (Version None)
Quarter: 2010Q4

REPORT INFORMATION
  Report Type: 
  Country: None (occurrence: None)
  Receive Date: 20101011
  Receipt Date: 20100928
  Transmission Date: 20110411
  Serious: Yes (Death, Hospitalization, Other)
  Sender: FDA-Public Use
  Company Number: US-ELI_LILLY_AND_COMPANY-US201006006472

PATIENT
  Sex: Male

DRUGS (25)
  1. FORTEO [Suspect]
     Dosage: 20 UG, UNKNOWN
     Route: 058
     Dates: start: 20091105
  2. VITAMIN D [Concomitant]
     Dosage: UNK, UNK
     Dates: start: 20091105
  3. ALBUTEROL [Concomitant]
     Dosage: UNK, UNK
  4. ASPIRIN [Concomitant]
     Dosage: UNK, UNK
  5. CEFOTAXIME SODIUM [Concomitant]
     Dosage: UNK, UNK
  6. PLAVIX [Concomitant]
     Dosage: UNK, UNK
  7. DIGOXIN [Concomitant]
     Dosage: UNK, UNK
  8. DOCUSATE [Concomitant]
  9. ENALAPRIL MALEATE [Concomitant]
     Dosage: 10 MG, UNK
  10. LOVENOX [Concomitant]
  11. LASIX [Concomitant]
     Dosage: 40 MG, 2/D
  12. HYDROCODONE [Concomitant]
     Dosage: 5 MG, AS NEEDED
  13. INSULIN [Concomitant]
  14. ISORDIL [Concomitant]
     Dosage: 30 MG, 2/D
  15. MAGNESIUM OXIDE [Concomitant]
  16. SOLU-MEDROL [Concomitant]
     Dosage: 40 MG, EVERY 8 HRS
     Route: 042
  17. LOPRESSOR [Concomitant]
     Dosage: 75 MG, 2/D
     Route: 048
  18. NITROGLYCERIN [Concomitant]
     Dosage: UNK, AS NEEDED
  19. OMEPRAZOLE [Concomitant]
  20. POTASSIUM [Concomitant]
     Dosage: 10 MEQ, DAILY (1/D)
  21. SIMVASTATIN [Concomitant]
     Dosage: 10 MG, EACH EVENING
  22. SPIRONOLACTONE [Concomitant]
     Dosage: 25 MG, DAILY (1/D)
  23. COUMADIN [Concomitant]
     Dosage: 5 MG, DAILY (1/D)
  24. ZOLPIDEM [Concomitant]
  25. PREDNISONE [Concomitant]

REACTIONS (16)
  - ATRIAL FIBRILLATION [None]
  - BACK PAIN [None]
  - BLOOD SODIUM DECREASED [None]
  - CONFUSIONAL STATE [None]
  - CORONARY ARTERY DISEASE [None]
  - DIABETES MELLITUS [None]
  - DYSURIA [None]
  - HEART RATE INCREASED [None]
  - HYPOVENTILATION [None]
  - METASTASES TO BONE [None]
  - NEOPLASM MALIGNANT [None]
  - PAIN [None]
  - PNEUMONIA [None]
  - SICK SINUS SYNDROME [None]
  - UNRESPONSIVE TO STIMULI [None]
  - WEIGHT DECREASED [None]
